FAERS Safety Report 5572430-6 (Version None)
Quarter: 2007Q4

REPORT INFORMATION
  Report Type: 
  Country: None (occurrence: None)
  Receive Date: 20071222
  Receipt Date: 20071212
  Transmission Date: 20080405
  Serious: Yes (Other)
  Sender: FDA-Public Use
  Company Number: BE-PFIZER INC-2007097489

PATIENT
  Sex: Female

DRUGS (4)
  1. LYRICA [Suspect]
     Route: 048
  2. SOTALOL HCL [Suspect]
     Route: 048
  3. DIOVAN [Concomitant]
  4. PRAVASTATIN [Concomitant]

REACTIONS (4)
  - ABDOMINAL RIGIDITY [None]
  - DYSPNOEA [None]
  - HYPOTENSION [None]
  - SYNCOPE [None]
